FAERS Safety Report 8954118 (Version 2)
Quarter: 2013Q1

REPORT INFORMATION
  Report Type: Report from Study
  Country: US (occurrence: US)
  Receive Date: 20121207
  Receipt Date: 20130318
  Transmission Date: 20140127
  Serious: Yes (Hospitalization, Other)
  Sender: FDA-Public Use
  Company Number: US-GENZYME-MOZO-1000787

PATIENT
  Age: 75 None
  Sex: Male
  Weight: 84 kg

DRUGS (24)
  1. MOZOBIL [Suspect]
     Indication: HAEMATOPOIETIC STEM CELL MOBILISATION
     Dosage: UNK, STAGE 2, (M,W,F) X 9 DOSES
     Route: 058
     Dates: start: 20120820
  2. MOZOBIL [Suspect]
     Indication: CHRONIC LYMPHOCYTIC LEUKAEMIA
     Dosage: UNK
     Route: 058
     Dates: start: 20121029
  3. LENALIDOMIDE [Suspect]
     Indication: CHRONIC LYMPHOCYTIC LEUKAEMIA
     Dosage: UNK, QD
     Route: 048
     Dates: start: 20120723
  4. LENALIDOMIDE [Suspect]
     Dosage: UNK
     Route: 048
     Dates: start: 20121029, end: 20121126
  5. ZOVIRAX [Concomitant]
     Indication: PRODUCT USED FOR UNKNOWN INDICATION
     Dosage: UNK, Q12HR
     Route: 048
  6. VENTOLIN HFA [Concomitant]
     Indication: CHRONIC OBSTRUCTIVE PULMONARY DISEASE
     Dosage: UNK, (INHALATION)
     Route: 065
  7. ASA [Concomitant]
     Indication: PRODUCT USED FOR UNKNOWN INDICATION
     Dosage: UNK, DAILY
     Route: 048
  8. DABIGATRAN [Concomitant]
     Indication: ATRIAL FIBRILLATION
     Dosage: 150 MG, QD
     Route: 048
     Dates: end: 20121120
  9. DABIGATRAN [Concomitant]
     Dosage: UNK
     Route: 065
     Dates: start: 201211
  10. ADVAIR [Concomitant]
     Indication: CHRONIC OBSTRUCTIVE PULMONARY DISEASE
     Dosage: UNK, (1 INHALATION INH BIDRT)
     Route: 065
  11. NEURONTIN [Concomitant]
     Indication: PAIN
     Dosage: UNK
     Route: 048
  12. TRANDATE [Concomitant]
     Indication: PRODUCT USED FOR UNKNOWN INDICATION
     Dosage: UNK
     Route: 042
  13. K-DUR [Concomitant]
     Indication: PRODUCT USED FOR UNKNOWN INDICATION
     Dosage: UNK, (10 MEQ DAILY)
     Route: 048
  14. PRAVACHOL [Concomitant]
     Indication: ATRIAL FIBRILLATION
     Dosage: UNK, QHS
     Route: 048
  15. SPIRIVA [Concomitant]
     Indication: CHRONIC OBSTRUCTIVE PULMONARY DISEASE
     Dosage: UNK 1 (INHALATION DAILY)
     Route: 065
  16. AMBIEN [Concomitant]
     Indication: INSOMNIA
     Dosage: UNK, QHS
     Route: 048
  17. LACTOBACILLUS [Concomitant]
     Indication: PRODUCT USED FOR UNKNOWN INDICATION
     Dosage: 1 DF, QD
     Route: 048
  18. LOPERAMIDE [Concomitant]
     Indication: PRODUCT USED FOR UNKNOWN INDICATION
     Dosage: 2 MG, BID
     Route: 048
  19. MEGACE [Concomitant]
     Indication: PRODUCT USED FOR UNKNOWN INDICATION
     Dosage: 400 MG, QD
     Route: 048
  20. MULTIVITAMIN [Concomitant]
     Indication: PRODUCT USED FOR UNKNOWN INDICATION
     Dosage: 1 DF, QD
     Route: 048
  21. OMEPRAZOLE [Concomitant]
     Indication: PRODUCT USED FOR UNKNOWN INDICATION
     Dosage: 20 MG, QD
     Route: 048
  22. LEVAQUIN [Concomitant]
     Indication: PNEUMONIA
     Dosage: UNK
     Route: 065
     Dates: start: 2012
  23. FLUDROCORTISONE [Concomitant]
     Indication: PRODUCT USED FOR UNKNOWN INDICATION
     Dosage: UNK
     Route: 065
  24. CELEXA [Concomitant]
     Indication: PRODUCT USED FOR UNKNOWN INDICATION
     Dosage: UNK
     Route: 065

REACTIONS (23)
  - Pleural effusion [Unknown]
  - Atelectasis [Unknown]
  - Prothrombin level increased [Unknown]
  - Blood potassium decreased [Unknown]
  - Blood calcium decreased [Unknown]
  - Protein total decreased [Unknown]
  - Blood albumin decreased [Unknown]
  - Haemoglobin decreased [Unknown]
  - White blood cell count decreased [Unknown]
  - Protein urine present [Unknown]
  - Urine bilirubin increased [Unknown]
  - Lung disorder [Unknown]
  - Urinary incontinence [Unknown]
  - Blood magnesium decreased [Unknown]
  - Gait disturbance [Unknown]
  - Hypotension [Unknown]
  - Tremor [Unknown]
  - Asthenia [Unknown]
  - Platelet count decreased [Unknown]
  - Erythema [Unknown]
  - Dizziness [Unknown]
  - Escherichia sepsis [Unknown]
  - Aphasia [Recovered/Resolved]
